FAERS Safety Report 6427634-7 (Version None)
Quarter: 2009Q4

REPORT INFORMATION
  Report Type: 
  Country: None (occurrence: None)
  Receive Date: 20091104
  Receipt Date: 20091023
  Transmission Date: 20100525
  Serious: Yes (Other)
  Sender: FDA-Public Use
  Company Number: US-JNJCH-2009028411

PATIENT
  Age: 21 Year
  Sex: Male
  Weight: 61.2 kg

DRUGS (1)
  1. LUDENS THROAT DROPS WILD CHERRY [Suspect]
     Indication: DRUG USE FOR UNKNOWN INDICATION
     Dosage: TEXT:UNSPECIFIED
     Route: 048

REACTIONS (5)
  - EJECTION FRACTION [None]
  - HEPATIC CIRRHOSIS [None]
  - NERVOUS SYSTEM DISORDER [None]
  - SLEEP APNOEA SYNDROME [None]
  - THERAPEUTIC RESPONSE UNEXPECTED [None]
